FAERS Safety Report 24207996 (Version 6)
Quarter: 2025Q1

REPORT INFORMATION
  Report Type: Report from Study
  Country: CA (occurrence: CA)
  Receive Date: 20240814
  Receipt Date: 20250303
  Transmission Date: 20250409
  Serious: Yes (Other)
  Sender: JOHNSON AND JOHNSON
  Company Number: CA-JNJFOC-20240513611

PATIENT
  Age: 31 Year
  Sex: Female

DRUGS (2)
  1. REMICADE [Suspect]
     Active Substance: INFLIXIMAB
     Indication: Crohn^s disease
     Dosage: THE PATIENT RECEIVED 26TH INFLIXIMAB, RECOMBINANT INFUSION. LAST REMICADE INFUSION 09-AUG-2024.
     Route: 041
     Dates: start: 20200423
  2. REMICADE [Suspect]
     Active Substance: INFLIXIMAB
     Dosage: EXPIRY DATE:  NOV 2026, LAST INFUSION DATE: 09-AUG-2024
     Route: 041

REACTIONS (12)
  - Road traffic accident [Recovered/Resolved]
  - Pneumothorax [Unknown]
  - Neuropathy peripheral [Unknown]
  - Wrist surgery [Unknown]
  - Specialist consultation [Recovered/Resolved]
  - Tooth fracture [Recovered/Resolved]
  - Tooth infection [Recovered/Resolved]
  - COVID-19 [Recovered/Resolved]
  - Antibiotic therapy [Unknown]
  - Concussion [Unknown]
  - Memory impairment [Unknown]
  - Product dose omission issue [Unknown]

NARRATIVE: CASE EVENT DATE: 20240406
